FAERS Safety Report 14228050 (Version 16)
Quarter: 2019Q2

REPORT INFORMATION
  Report Type: Report from Study
  Country: US (occurrence: US)
  Receive Date: 20171127
  Receipt Date: 20190617
  Transmission Date: 20190711
  Serious: Yes (Hospitalization)
  Sender: FDA-Public Use
  Company Number: US-ACTELION-A-NJ2013-89034

PATIENT
  Age: 47 Year
  Sex: Female
  Weight: 54.42 kg

DRUGS (8)
  1. COUMADIN [Concomitant]
     Active Substance: WARFARIN SODIUM
  2. VELETRI [Suspect]
     Active Substance: EPOPROSTENOL
     Dosage: 15.1 NG/KG, CONT INFUS
     Route: 042
  3. VELETRI [Suspect]
     Active Substance: EPOPROSTENOL
     Dosage: 15.4 NG/KG, PER MIN
     Route: 042
  4. VELETRI [Suspect]
     Active Substance: EPOPROSTENOL
     Dosage: UNK
     Route: 042
     Dates: start: 20120816
  5. VELETRI [Suspect]
     Active Substance: EPOPROSTENOL
     Dosage: 14.6 NG/KG, PER MIN
     Route: 042
  6. VELETRI [Suspect]
     Active Substance: EPOPROSTENOL
     Dosage: 14.5 NG/KG, PER MIN
     Route: 042
  7. LETAIRIS [Suspect]
     Active Substance: AMBRISENTAN
     Indication: PRODUCT USED FOR UNKNOWN INDICATION
     Dosage: 10 MG, QD
     Route: 065
     Dates: start: 20090202
  8. VELETRI [Suspect]
     Active Substance: EPOPROSTENOL
     Indication: PULMONARY HYPERTENSION
     Dosage: 15.6 NG/KG, PER MIN
     Route: 042
     Dates: start: 20120816

REACTIONS (48)
  - Pulmonary arterial pressure abnormal [Unknown]
  - Chest pain [Recovered/Resolved]
  - Presyncope [Unknown]
  - Exercise tolerance decreased [Unknown]
  - Dyspnoea exertional [Not Recovered/Not Resolved]
  - Feeling abnormal [Unknown]
  - Dizziness postural [Unknown]
  - Bone pain [Unknown]
  - Pain in extremity [Unknown]
  - Pain in jaw [Unknown]
  - Abdominal pain upper [Unknown]
  - Eating disorder [Unknown]
  - Dyspnoea paroxysmal nocturnal [Unknown]
  - Dizziness [Unknown]
  - Catheter site pain [Unknown]
  - Palpitations [Unknown]
  - Product administration error [Unknown]
  - Weight decreased [Unknown]
  - Epistaxis [Unknown]
  - Peripheral swelling [Unknown]
  - Device alarm issue [Recovered/Resolved]
  - Seasonal allergy [Unknown]
  - Oxygen saturation decreased [Unknown]
  - Cough [Unknown]
  - Paraesthesia [Unknown]
  - Arthralgia [Unknown]
  - Insomnia [Unknown]
  - Dyspnoea at rest [Not Recovered/Not Resolved]
  - Pruritus [Unknown]
  - Dyspnoea [Unknown]
  - Chest discomfort [Unknown]
  - Catheter site erythema [Unknown]
  - Catheter site related reaction [Unknown]
  - Catheter site swelling [Unknown]
  - Flushing [Unknown]
  - Myalgia [Unknown]
  - Hot flush [Unknown]
  - Adverse event [Unknown]
  - Nausea [Unknown]
  - Malaise [Unknown]
  - Therapy non-responder [Unknown]
  - Hypersensitivity [Unknown]
  - Headache [Unknown]
  - Haemoptysis [Unknown]
  - Fatigue [Unknown]
  - Choking [Unknown]
  - Haematemesis [Unknown]
  - Vascular pain [Unknown]

NARRATIVE: CASE EVENT DATE: 20130927
